FAERS Safety Report 11713906 (Version 7)
Quarter: 2021Q1

REPORT INFORMATION
  Report Type: Spontaneous
  Country: US (occurrence: US)
  Receive Date: 20151109
  Receipt Date: 20210213
  Transmission Date: 20210419
  Serious: Yes (Congenital Anomaly, Other)
  Sender: FDA-Public Use
  Company Number: PHEH2015US022863

PATIENT
  Sex: Male

DRUGS (2)
  1. ONDANSETRON [Suspect]
     Active Substance: ONDANSETRON
     Indication: FOETAL EXPOSURE DURING PREGNANCY
     Route: 064
  2. ZOFRAN [Suspect]
     Active Substance: ONDANSETRON HYDROCHLORIDE
     Indication: FOETAL EXPOSURE DURING PREGNANCY
     Route: 064

REACTIONS (30)
  - Pain [Unknown]
  - Sneezing [Unknown]
  - Anxiety [Unknown]
  - Scar [Unknown]
  - Rhinitis allergic [Unknown]
  - Oropharyngeal pain [Unknown]
  - Transposition of the great vessels [Unknown]
  - Cough [Unknown]
  - Pharyngitis [Unknown]
  - Congenital anomaly [Unknown]
  - Hypoplastic left heart syndrome [Unknown]
  - Mitral valve incompetence [Unknown]
  - Nasal congestion [Unknown]
  - Otitis media acute [Unknown]
  - Acute sinusitis [Unknown]
  - Upper respiratory tract infection [Unknown]
  - Multiple congenital abnormalities [Unknown]
  - Atrial septal defect [Unknown]
  - Foetal exposure during pregnancy [Unknown]
  - Asthma [Unknown]
  - Wheezing [Unknown]
  - Respiratory failure [Unknown]
  - Cardiac murmur [Unknown]
  - Right ventricular dilatation [Unknown]
  - Hypoplastic right heart syndrome [Unknown]
  - Heart disease congenital [Unknown]
  - Anhedonia [Unknown]
  - Pyrexia [Unknown]
  - Rhinorrhoea [Unknown]
  - Pericardial effusion [Unknown]
